FAERS Safety Report 7337298-6 (Version None)
Quarter: 2011Q1

REPORT INFORMATION
  Report Type: 
  Country: None (occurrence: None)
  Receive Date: 20110222
  Receipt Date: 20110209
  Transmission Date: 20110831
  Serious: Yes (Other)
  Sender: FDA-Public Use
  Company Number: 2007-01863

PATIENT
  Age: 62 Year
  Sex: Female
  Weight: 43 kg

DRUGS (8)
  1. VELCADE [Suspect]
     Indication: MULTIPLE MYELOMA
     Dosage: 1.7 MG, INTRAVENOUS; 1.20 MG, INTRAVENOUS; 0.8 MG, INTRAVENOUS
     Route: 042
     Dates: start: 20070521, end: 20070531
  2. VELCADE [Suspect]
     Indication: MULTIPLE MYELOMA
     Dosage: 1.7 MG, INTRAVENOUS; 1.20 MG, INTRAVENOUS; 0.8 MG, INTRAVENOUS
     Route: 042
     Dates: start: 20090309, end: 20090601
  3. VELCADE [Suspect]
     Indication: MULTIPLE MYELOMA
     Dosage: 1.7 MG, INTRAVENOUS; 1.20 MG, INTRAVENOUS; 0.8 MG, INTRAVENOUS
     Route: 042
     Dates: start: 20070702, end: 20070702
  4. ITRIZOLE (ITRACONAZOLE) SOLUTION (EXCEPT SYRUP) [Concomitant]
  5. BAKTAR (SULFAMETHOXAZOLE, TRIMETHOPRIM) TABLET [Concomitant]
  6. DEXAMETHASONE (DEXAMETHASONE) [Concomitant]
  7. ALLOPURINOL [Concomitant]
  8. OMEPRAZOLE [Concomitant]

REACTIONS (10)
  - HYPOCHLORAEMIA [None]
  - DIARRHOEA [None]
  - PROTEIN TOTAL DECREASED [None]
  - PYREXIA [None]
  - PROTEINURIA [None]
  - ALANINE AMINOTRANSFERASE INCREASED [None]
  - HYPOKALAEMIA [None]
  - HYPOAESTHESIA [None]
  - HYPONATRAEMIA [None]
  - PLATELET COUNT DECREASED [None]
